FAERS Safety Report 8945250 (Version 2)
Quarter: 2012Q4

REPORT INFORMATION
  Report Type: 
  Country: JP (occurrence: JP)
  Receive Date: 20121205
  Receipt Date: 20121220
  Transmission Date: 20130627
  Serious: Yes (Other)
  Sender: FDA-Public Use
  Company Number: JP-SANOFI-AVENTIS-2012SA088826

PATIENT
  Sex: Male

DRUGS (2)
  1. MYSLEE [Suspect]
     Indication: TRIGEMINAL NEURALGIA
     Dosage: 10 mg on awakening and 10 mg before work on an as needed basis (patient took 30 to 40 mg daily)
     Route: 048
  2. ANALGESICS [Concomitant]
     Indication: TRIGEMINAL NEURALGIA
     Route: 048
     Dates: end: 2010

REACTIONS (2)
  - Diverticulitis [Recovered/Resolved]
  - Off label use [Unknown]
